FAERS Safety Report 24007036 (Version 1)
Quarter: 2024Q2

REPORT INFORMATION
  Report Type: Spontaneous
  Country: PA (occurrence: PA)
  Receive Date: 20240624
  Receipt Date: 20240624
  Transmission Date: 20240716
  Serious: Yes (Other)
  Sender: FDA-Public Use
  Company Number: PA-002147023-NVSC2024PA130089

PATIENT
  Sex: Female

DRUGS (1)
  1. KISQALI [Suspect]
     Active Substance: RIBOCICLIB
     Indication: Breast cancer
     Dosage: 200 MG, QD (5 YEARS AGO)
     Route: 048

REACTIONS (4)
  - Amnesia [Not Recovered/Not Resolved]
  - Carotid artery disease [Unknown]
  - Syncope [Unknown]
  - Ill-defined disorder [Unknown]
